FAERS Safety Report 8624487-3 (Version None)
Quarter: 2012Q3

REPORT INFORMATION
  Report Type: 
  Country: None (occurrence: None)
  Receive Date: 20120827
  Receipt Date: 20120820
  Transmission Date: 20120928
  Serious: Yes (Death, Life-Threatening)
  Sender: FDA-Public Use
  Company Number: US-CELGENEUS-163-AB007-12082205

PATIENT
  Sex: Female

DRUGS (4)
  1. ABRAXANE [Suspect]
     Dosage: 125 MILLIGRAM/SQ. METER
     Route: 041
     Dates: start: 20120328
  2. GEMCITABINE HYDROCHLORIDE [Suspect]
     Dosage: 1000 MILLIGRAM/SQ. METER
     Route: 041
     Dates: start: 20120328
  3. ABRAXANE [Suspect]
     Dosage: 125 MILLIGRAM/SQ. METER
     Route: 041
     Dates: start: 20120404, end: 20120410
  4. GEMCITABINE HYDROCHLORIDE [Suspect]
     Dosage: 1000 MILLIGRAM/SQ. METER
     Route: 041
     Dates: start: 20120404, end: 20120410

REACTIONS (4)
  - NEUTROPENIA [None]
  - SEPTIC SHOCK [None]
  - RENAL FAILURE ACUTE [None]
  - LEUKOPENIA [None]
